FAERS Safety Report 5911281-7 (Version None)
Quarter: 2008Q4

REPORT INFORMATION
  Report Type: 
  Country: None (occurrence: None)
  Receive Date: 20081007
  Receipt Date: 20080920
  Transmission Date: 20090506
  Serious: Yes (Other)
  Sender: FDA-Public Use
  Company Number: FR-B.I. PHARMACEUTICALS,INC./RIDGEFIELD-2008-FF-00666FF

PATIENT
  Sex: Male
  Weight: 80 kg

DRUGS (6)
  1. MECIR LP 0.4 [Suspect]
     Indication: PROSTATIC ADENOMA
     Dosage: .4MG
     Route: 048
  2. STABLON [Concomitant]
     Route: 048
  3. PIASCLEDINE [Concomitant]
     Route: 048
  4. VASTAREL [Concomitant]
     Dosage: 70MG
     Route: 048
  5. PRAVASTATIN [Concomitant]
     Dosage: 20MG
     Route: 048
  6. METFORMIN HCL [Concomitant]
     Dosage: 850MG
     Route: 048

REACTIONS (1)
  - URINARY RETENTION [None]
